FAERS Safety Report 4684923-4 (Version None)
Quarter: 2005Q2

REPORT INFORMATION
  Report Type: 
  Country: None (occurrence: None)
  Receive Date: 20050606
  Receipt Date: 20050606
  Transmission Date: 20051028
  Serious: Yes (Other)
  Sender: FDA-Public Use
  Company Number: None

PATIENT
  Age: 49 Year
  Sex: Male
  Weight: 68.0396 kg

DRUGS (1)
  1. CORTISPORIN [Suspect]
     Indication: EAR INFECTION
     Dosage: 2-4 DROPS TID
     Route: 001
     Dates: start: 20050307, end: 20050310

REACTIONS (3)
  - DRUG ERUPTION [None]
  - PRURITUS [None]
  - SECRETION DISCHARGE [None]
